FAERS Safety Report 10713063 (Version 1)
Quarter: 2015Q1

REPORT INFORMATION
  Report Type: Spontaneous
  Country: IT (occurrence: IT)
  Receive Date: 20150115
  Receipt Date: 20150115
  Transmission Date: 20150721
  Serious: Yes (Life-Threatening)
  Sender: FDA-Public Use
  Company Number: IT-AMGEN-ITASP2015002566

PATIENT
  Age: 55 Year
  Sex: Female

DRUGS (9)
  1. GLADIO [Concomitant]
     Dosage: 1 DF, AS NEEDED
     Route: 048
  2. DELTACORTENE [Concomitant]
     Active Substance: PREDNISONE
     Dosage: 0.5 DF, DAILY
     Route: 048
  3. SICCAFLUID [Concomitant]
     Dosage: 3 GTT, 4X/DAY
  4. PANTOPRAZOLE [Concomitant]
     Active Substance: PANTOPRAZOLE SODIUM
     Dosage: 20 MG, UNK
     Route: 048
  5. DIBASE [Concomitant]
     Active Substance: CHOLECALCIFEROL
     Dosage: 1 DF EVERY 15 DAYS
  6. ENBREL [Suspect]
     Active Substance: ETANERCEPT
     Indication: ANKYLOSING SPONDYLITIS
     Dosage: UNK UNK, WEEKLY
     Route: 058
  7. EXPOSE [Concomitant]
     Dosage: 1 DF, UNK
     Route: 048
  8. APROVEL [Concomitant]
     Active Substance: IRBESARTAN
     Dosage: 1 DF, UNK
  9. CONGESCOR [Concomitant]
     Active Substance: BISOPROLOL
     Dosage: 1 DF, UNK

REACTIONS (6)
  - Lacrimation increased [Recovered/Resolved with Sequelae]
  - Injection site oedema [Recovered/Resolved with Sequelae]
  - Injection site erythema [Recovered/Resolved with Sequelae]
  - Oedema [Recovered/Resolved with Sequelae]
  - Pruritus generalised [Recovered/Resolved with Sequelae]
  - Erythema [Recovered/Resolved with Sequelae]

NARRATIVE: CASE EVENT DATE: 20141222
